FAERS Safety Report 21949542 (Version 1)
Quarter: 2023Q1

REPORT INFORMATION
  Report Type: Spontaneous
  Country: US (occurrence: US)
  Receive Date: 20230203
  Receipt Date: 20230203
  Transmission Date: 20230417
  Serious: Yes (Hospitalization)
  Sender: FDA-Public Use
  Company Number: US-drreddys-LIT/USA/23/0160642

PATIENT

DRUGS (4)
  1. DAPTOMYCIN [Suspect]
     Active Substance: DAPTOMYCIN
     Indication: Enterococcal infection
     Dosage: DECREASING BY 10  MG EVERY 4  DAYS UNTIL OFF THE LAST DOSE BEING ADMINISTERED ON HOSPITAL DAY 26
  2. PREDNISONE [Suspect]
     Active Substance: PREDNISONE
     Indication: Retinal pigment epitheliopathy
  3. PREDNISONE [Suspect]
     Active Substance: PREDNISONE
     Dosage: TAPER WAS INITIATED ON HOSPITAL DAY 5 (DECREASING BY 10MG EVERY 4 DAYS UNTIL OF)
  4. MEROPENEM [Suspect]
     Active Substance: MEROPENEM
     Indication: Alcaligenes infection

REACTIONS (2)
  - Strongyloidiasis [Unknown]
  - Eosinophilic pneumonia [Recovered/Resolved]
